FAERS Safety Report 5114051-5 (Version None)
Quarter: 2006Q3

REPORT INFORMATION
  Report Type: 
  Country: None (occurrence: None)
  Receive Date: 20060925
  Receipt Date: 20060920
  Transmission Date: 20061208
  Serious: Yes (Other)
  Sender: FDA-Public Use
  Company Number: US-MERCK-0609USA04483

PATIENT
  Age: 17 Year
  Sex: Female

DRUGS (3)
  1. SINGULAIR [Suspect]
     Indication: ASTHMA
     Route: 048
     Dates: start: 20060101, end: 20060101
  2. SINGULAIR [Suspect]
     Route: 048
     Dates: start: 20060101
  3. FLOVENT [Concomitant]
     Route: 065

REACTIONS (1)
  - SEDATION [None]
